FAERS Safety Report 9023751 (Version 1)
Quarter: 2013Q1

REPORT INFORMATION
  Report Type: Report from Study
  Country: US (occurrence: MY)
  Receive Date: 20130121
  Receipt Date: 20130121
  Transmission Date: 20140127
  Serious: Yes (Other)
  Sender: FDA-Public Use
  Company Number: MY-MYLANLABS-2013S1000557

PATIENT
  Age: 28 Year
  Sex: Female

DRUGS (6)
  1. DIDANOSINE [Suspect]
     Route: 048
     Dates: start: 20060908, end: 20071016
  2. ATAZANAVIR SULFATE [Suspect]
     Route: 048
     Dates: start: 20060908, end: 20071016
  3. EMTRICITABINE [Suspect]
     Route: 048
     Dates: start: 20060908, end: 20071016
  4. TRUVADA [Suspect]
     Route: 048
     Dates: start: 20071010, end: 20071130
  5. ZIDOVUDINE [Suspect]
     Route: 048
     Dates: start: 20071018, end: 20071201
  6. NEVIRAPINE [Suspect]
     Route: 048
     Dates: start: 20071018, end: 20071201

REACTIONS (2)
  - Stillbirth [Fatal]
  - Exposure during pregnancy [Recovered/Resolved]
